FAERS Safety Report 9950887 (Version 1)
Quarter: 2014Q1

REPORT INFORMATION
  Report Type: Report from Study
  Country: US (occurrence: US)
  Receive Date: 20140304
  Receipt Date: 20140304
  Transmission Date: 20141002
  Serious: Yes (Other)
  Sender: FDA-Public Use
  Company Number: US-ABBVIE-13P-163-1068174-00

PATIENT
  Age: 56 Year
  Sex: Female

DRUGS (23)
  1. HUMIRA [Suspect]
     Indication: RHEUMATOID ARTHRITIS
     Dates: start: 2010, end: 201210
  2. ATENOLOL [Concomitant]
     Indication: HYPERTENSION
     Dosage: 50 MG DAILY
     Route: 048
  3. LOSARTAN [Concomitant]
     Indication: HYPERTENSION
     Dosage: 50 MG DAILY
     Route: 048
  4. CLONIDINE [Concomitant]
     Indication: BLOOD PRESSURE
     Dosage: (TAKE IF SYSTOLIC }170 AND DIASTOLIC }95
     Route: 048
  5. LIDODERM [Concomitant]
     Indication: NERVOUSNESS
     Dosage: AT BEDTIME
  6. LIDODERM [Concomitant]
     Indication: BACK PAIN
  7. LIPITOR [Concomitant]
     Indication: BLOOD CHOLESTEROL
     Dosage: 20 MG DAILY
     Route: 048
  8. LOVAZA [Concomitant]
     Indication: BLOOD CHOLESTEROL
     Route: 048
  9. POTASSIUM GLUCONATE [Concomitant]
     Indication: BLOOD POTASSIUM DECREASED
     Route: 048
  10. POTASSIUM GLUCONATE [Concomitant]
     Indication: ANAEMIA
  11. PARAFON FORTE [Concomitant]
     Indication: MUSCLE RELAXANT THERAPY
  12. PROMETHAZINE [Concomitant]
     Indication: VOMITING
     Dosage: EVERY 6 HOURS AS NEEDED
     Route: 048
  13. LIBRAX [Concomitant]
     Indication: IRRITABLE BOWEL SYNDROME
     Route: 048
  14. NEXIUM [Concomitant]
     Indication: GASTROOESOPHAGEAL REFLUX DISEASE
     Dosage: 4 MG DAILY
     Route: 048
  15. ZEGERID [Concomitant]
     Indication: GASTROOESOPHAGEAL REFLUX DISEASE
     Dosage: DAILY
     Route: 048
  16. FAMOTIDINE [Concomitant]
     Indication: GASTROINTESTINAL DISORDER
     Dosage: ONE TABLET BETWEEN MEALS
  17. REGLAN [Concomitant]
     Indication: PRODUCT USED FOR UNKNOWN INDICATION
     Route: 048
  18. METFORMIN [Concomitant]
     Indication: DIABETES MELLITUS
     Dosage: ONE IN AM, ONE IN PM
  19. SERTRALINE [Concomitant]
     Indication: NERVOUSNESS
  20. PERCOCET [Concomitant]
     Indication: PAIN
  21. PHENAZOPYRIDINE [Concomitant]
     Indication: PRODUCT USED FOR UNKNOWN INDICATION
  22. LYRICA [Concomitant]
     Indication: RHEUMATOID ARTHRITIS
  23. VITAMINS [Concomitant]
     Indication: VITAMIN SUPPLEMENTATION
     Dosage: DAILY

REACTIONS (5)
  - Rotator cuff repair [Unknown]
  - Vomiting [Unknown]
  - Blood pressure increased [Unknown]
  - Kidney infection [Unknown]
  - Ear infection [Unknown]
